FAERS Safety Report 8626036-2 (Version None)
Quarter: 2012Q3

REPORT INFORMATION
  Report Type: 
  Country: None (occurrence: None)
  Receive Date: 20120827
  Receipt Date: 20120822
  Transmission Date: 20120928
  Serious: Yes (Death, Hospitalization, Other)
  Sender: FDA-Public Use
  Company Number: SI-ABBOTT-12P-261-0971258-00

PATIENT
  Sex: Male
  Weight: 101 kg

DRUGS (3)
  1. INFLIXIMETAN [Suspect]
     Indication: PRODUCT USED FOR UNKNOWN INDICATION
     Dates: start: 20101014, end: 20110612
  2. ARCOXIA [Concomitant]
     Indication: PRODUCT USED FOR UNKNOWN INDICATION
  3. HUMIRA [Suspect]
     Indication: ANKYLOSING SPONDYLITIS
     Route: 058
     Dates: start: 20101014, end: 20120725

REACTIONS (5)
  - SEPTIC SHOCK [None]
  - ASPARTATE AMINOTRANSFERASE INCREASED [None]
  - ALANINE AMINOTRANSFERASE INCREASED [None]
  - MULTI-ORGAN FAILURE [None]
  - PNEUMONIA LEGIONELLA [None]
